FAERS Safety Report 5793663-X (Version None)
Quarter: 2008Q2

REPORT INFORMATION
  Report Type: 
  Country: None (occurrence: None)
  Receive Date: 20080627
  Receipt Date: 20080624
  Transmission Date: 20081010
  Serious: Yes (Other)
  Sender: FDA-Public Use
  Company Number: US-JNJFOC-20080606142

PATIENT
  Age: 65 Year
  Sex: Male

DRUGS (3)
  1. FLEXERIL [Suspect]
     Indication: MUSCLE SPASMS
     Route: 048
  2. KADIAN [Suspect]
     Indication: OSTEOARTHRITIS
     Route: 048
  3. ACETAMINOPHEN AND HYDROCODONE BITARTRATE [Suspect]
     Indication: PAIN
     Dosage: 10/325MG
     Route: 048

REACTIONS (1)
  - VESTIBULAR DISORDER [None]
